FAERS Safety Report 14365011 (Version 1)
Quarter: 2018Q1

REPORT INFORMATION
  Report Type: Spontaneous
  Country: US (occurrence: US)
  Receive Date: 20180108
  Receipt Date: 20180108
  Transmission Date: 20180509
  Serious: No
  Sender: FDA-Public Use
  Company Number: US-ROCHE-1904798

PATIENT
  Age: 72 Year
  Sex: Male
  Weight: 75.5 kg

DRUGS (1)
  1. ACTIVASE [Suspect]
     Active Substance: ALTEPLASE
     Indication: COMPLICATION ASSOCIATED WITH DEVICE
     Dosage: 1 MG PER PORT FOR A TOTAL DOSE OF 2 MG
     Route: 065
     Dates: start: 20170308, end: 20170308

REACTIONS (3)
  - Vomiting [Unknown]
  - Chills [Unknown]
  - Nausea [Unknown]

NARRATIVE: CASE EVENT DATE: 20170308
